FAERS Safety Report 11876631 (Version 4)
Quarter: 2016Q3

REPORT INFORMATION
  Report Type: Report from Study
  Country: BR (occurrence: BR)
  Receive Date: 20151229
  Receipt Date: 20160915
  Transmission Date: 20161109
  Serious: Yes (Other)
  Sender: FDA-Public Use
  Company Number: PHHY2015BR170334

PATIENT
  Age: 12 Year
  Sex: Male
  Weight: 47 kg

DRUGS (4)
  1. EXJADE [Suspect]
     Active Substance: DEFERASIROX
     Indication: SICKLE CELL ANAEMIA
     Dosage: 15 MG/KG, QD (1 DF: 500 MG)
     Route: 048
  2. HYDROXYUREA. [Concomitant]
     Active Substance: HYDROXYUREA
     Indication: SICKLE CELL ANAEMIA
     Dosage: 2 DF, QD
     Route: 048
  3. EXJADE [Suspect]
     Active Substance: DEFERASIROX
     Dosage: 20 MG/KG, QD (2 DF OF 500 MG)/1000 MG
     Route: 048
  4. FOLIC ACID. [Concomitant]
     Active Substance: FOLIC ACID
     Indication: SICKLE CELL ANAEMIA
     Dosage: 1 DF, QD
     Route: 048

REACTIONS (11)
  - Vasodilatation [Unknown]
  - Hypercoagulation [Unknown]
  - Dysuria [Unknown]
  - Seizure [Unknown]
  - Cerebrovascular accident [Recovering/Resolving]
  - Oxygen saturation decreased [Unknown]
  - Moyamoya disease [Unknown]
  - Speech disorder [Unknown]
  - Serum ferritin increased [Unknown]
  - Vascular fragility [Unknown]
  - Abasia [Unknown]

NARRATIVE: CASE EVENT DATE: 20141104
